FAERS Safety Report 9149334 (Version 1)
Quarter: 2013Q1

REPORT INFORMATION
  Report Type: Spontaneous
  Country: US (occurrence: US)
  Receive Date: 20130308
  Receipt Date: 20130308
  Transmission Date: 20140127
  Serious: No
  Sender: FDA-Public Use
  Company Number: US-PFIZER INC-2013078608

PATIENT
  Age: 59 Year
  Sex: Male
  Weight: 111 kg

DRUGS (1)
  1. DEPO-TESTOSTERONE [Suspect]
     Dosage: UNK, 2X/WEEK
     Route: 030
     Dates: start: 201302, end: 20130304

REACTIONS (2)
  - Product deposit [Unknown]
  - Drug ineffective [Unknown]
